FAERS Safety Report 9382507 (Version 2)
Quarter: 2013Q3

REPORT INFORMATION
  Report Type: Report from Study
  Country: FR (occurrence: FR)
  Receive Date: 20130703
  Receipt Date: 20130723
  Transmission Date: 20140515
  Serious: Yes (Other)
  Sender: FDA-Public Use
  Company Number: FR-ACTELION-A-CH2013-84960

PATIENT
  Age: 77 Year
  Sex: Female
  Weight: 61 kg

DRUGS (1)
  1. TRACLEER [Suspect]
     Indication: SKIN ULCER
     Dosage: UNK , UNK
     Route: 048
     Dates: start: 20071229, end: 200802

REACTIONS (1)
  - Oesophageal adenocarcinoma [Unknown]
